FAERS Safety Report 13749551 (Version 2)
Quarter: 2017Q3

REPORT INFORMATION
  Report Type: Spontaneous
  Country: JP (occurrence: JP)
  Receive Date: 20170713
  Receipt Date: 20170804
  Transmission Date: 20171127
  Serious: Yes (Hospitalization, Other)
  Sender: FDA-Public Use
  Company Number: JP-PFIZER INC-2017303472

PATIENT
  Age: 69 Year
  Sex: Male
  Weight: 58.5 kg

DRUGS (9)
  1. SEPAZON [Concomitant]
     Active Substance: CLOXAZOLAM
     Dosage: 2 MG, 2X/DAY
     Route: 048
     Dates: start: 20090305
  2. NITRAZEPAM [Concomitant]
     Active Substance: NITRAZEPAM
     Dosage: 10 MG, 1X/DAY
     Route: 048
     Dates: start: 20090305
  3. LYRICA [Suspect]
     Active Substance: PREGABALIN
     Indication: NEURALGIA
     Dosage: 25 MG, 3X/DAY
     Route: 048
     Dates: start: 20170424
  4. SENNOSIDE /00571901/ [Concomitant]
     Active Substance: SENNOSIDES A AND B
     Dosage: 12 MG, 1X/DAY
     Route: 048
     Dates: start: 20090305
  5. CARBOCISTEINE [Concomitant]
     Active Substance: CARBOCYSTEINE
     Dosage: 500 MG, 3X/DAY
     Route: 048
     Dates: start: 20160325
  6. BIOFERMIN /07746301/ [Concomitant]
     Dosage: 2 DF, 3X/DAY
     Route: 048
     Dates: start: 20161129
  7. AKINETON [Concomitant]
     Active Substance: BIPERIDEN HYDROCHLORIDE
     Dosage: 1 MG, 3X/DAY
     Route: 048
     Dates: start: 20090305
  8. RISPERIDONE. [Suspect]
     Active Substance: RISPERIDONE
     Indication: SCHIZOPHRENIA
     Dosage: 2 MG, 3X/DAY
     Route: 048
     Dates: start: 20161015
  9. EBRANTIL /00631801/ [Concomitant]
     Active Substance: URAPIDIL
     Dosage: 30 MG, 2X/DAY
     Route: 048
     Dates: start: 20090315

REACTIONS (3)
  - Rhabdomyolysis [Recovered/Resolved]
  - Blood creatine phosphokinase increased [Recovered/Resolved]
  - Muscular weakness [Recovered/Resolved]

NARRATIVE: CASE EVENT DATE: 20170701
